FAERS Safety Report 10912254 (Version 1)
Quarter: 2015Q1

REPORT INFORMATION
  Report Type: Spontaneous
  Country: ES (occurrence: None)
  Receive Date: 20150310
  Receipt Date: 20150310
  Transmission Date: 20150721
  Serious: Yes (Disabling, Other)
  Sender: FDA-Public Use
  Company Number: None

PATIENT
  Age: 53 Year
  Sex: Female
  Weight: 63 kg

DRUGS (2)
  1. ATORVASTATIN 20 MG [Suspect]
     Active Substance: ATORVASTATIN
     Indication: BLOOD CHOLESTEROL INCREASED
     Dosage: 1
     Route: 048
     Dates: start: 20140114, end: 20140129
  2. ATORVASTATIN 20 MG [Suspect]
     Active Substance: ATORVASTATIN
     Indication: LOW DENSITY LIPOPROTEIN INCREASED
     Dosage: 1
     Route: 048
     Dates: start: 20140114, end: 20140129

REACTIONS (7)
  - Pain in extremity [None]
  - Joint dislocation [None]
  - Arthralgia [None]
  - Insomnia [None]
  - Antinuclear antibody positive [None]
  - Myalgia [None]
  - Musculoskeletal pain [None]

NARRATIVE: CASE EVENT DATE: 20140128
